FAERS Safety Report 5931939-3 (Version None)
Quarter: 2008Q4

REPORT INFORMATION
  Report Type: 
  Country: None (occurrence: None)
  Receive Date: 20081027
  Receipt Date: 20081020
  Transmission Date: 20090506
  Serious: Yes (Other)
  Sender: FDA-Public Use
  Company Number: PHHY2008GB25897

PATIENT
  Sex: Female

DRUGS (2)
  1. TEGRETOL [Suspect]
     Indication: PAIN
     Dosage: 100 MG
     Dates: start: 20080718
  2. TEGRETOL [Suspect]
     Dosage: 200 MG

REACTIONS (3)
  - ONYCHOMADESIS [None]
  - RASH [None]
  - SKIN EXFOLIATION [None]
